FAERS Safety Report 10036460 (Version 2)
Quarter: 2014Q1

REPORT INFORMATION
  Report Type: Report from Study
  Country: MX (occurrence: MX)
  Receive Date: 20140326
  Receipt Date: 20140326
  Transmission Date: 20141002
  Serious: Yes (Other)
  Sender: FDA-Public Use
  Company Number: PHHY2012MX096857

PATIENT
  Age: 75 Year
  Sex: Female
  Weight: 65 kg

DRUGS (4)
  1. DIOVAN [Suspect]
     Indication: HYPERTENSION
     Dosage: 1 DF, (160 MG) PER DAY
     Route: 048
     Dates: start: 20120912
  2. NEXIUM [Concomitant]
     Dosage: 1 DF, DAILY
  3. ASPIRIN PROTECT [Concomitant]
     Indication: ISCHAEMIC HEART DISEASE PROPHYLAXIS
     Dosage: 1 DF, DAILY
     Route: 048
  4. POSTURE D                          /00207901/ [Concomitant]
     Indication: BONE DISORDER
     Dosage: 1 DF, (600 MG) DAILY
     Route: 048

REACTIONS (15)
  - Pulmonary fibrosis [Recovered/Resolved]
  - Inflammation [Recovered/Resolved]
  - Pain [Recovered/Resolved]
  - Mental disorder [Recovered/Resolved]
  - Nervousness [Not Recovered/Not Resolved]
  - Blood glucose increased [Recovered/Resolved]
  - Hyperadrenalism [Recovered/Resolved]
  - Anger [Not Recovered/Not Resolved]
  - Tooth injury [Not Recovered/Not Resolved]
  - Weight increased [Unknown]
  - Weight decreased [Recovered/Resolved]
  - Tinnitus [Recovered/Resolved]
  - Dyspnoea [Recovered/Resolved]
  - Dizziness [Recovered/Resolved]
  - Blood pressure increased [Recovered/Resolved]
